FAERS Safety Report 15986031 (Version 2)
Quarter: 2019Q2

REPORT INFORMATION
  Report Type: Spontaneous
  Country: US (occurrence: US)
  Receive Date: 20190220
  Receipt Date: 20190404
  Transmission Date: 20190711
  Serious: No
  Sender: FDA-Public Use
  Company Number: US-CELGENEUS-USA-20190203887

PATIENT
  Sex: Female
  Weight: 77 kg

DRUGS (1)
  1. APREMILAST [Suspect]
     Active Substance: APREMILAST
     Indication: PSORIASIS
     Dosage: STARTER PACK
     Route: 048
     Dates: start: 2019

REACTIONS (3)
  - Vomiting [Unknown]
  - Nausea [Unknown]
  - Influenza [Unknown]

NARRATIVE: CASE EVENT DATE: 2019
